FAERS Safety Report 7263748-X (Version None)
Quarter: 2011Q1

REPORT INFORMATION
  Report Type: 
  Country: None (occurrence: None)
  Receive Date: 20110130
  Receipt Date: 20101028
  Transmission Date: 20110831
  Serious: No
  Sender: FDA-Public Use
  Company Number: US-ABBOTT-10P-163-0682314-00

PATIENT
  Sex: Female
  Weight: 69.008 kg

DRUGS (11)
  1. METHOTREXATE [Concomitant]
     Dates: start: 20101007
  2. JANUVIA [Concomitant]
     Indication: DIABETES MELLITUS
  3. PRILOSEC [Concomitant]
     Indication: GASTROOESOPHAGEAL REFLUX DISEASE
  4. IBUPROFEN [Concomitant]
     Indication: PAIN
  5. GLYBURIDE [Concomitant]
     Indication: DIABETES MELLITUS
  6. METHOTREXATE [Concomitant]
     Indication: PRODUCT USED FOR UNKNOWN INDICATION
     Dates: start: 20060101, end: 20090101
  7. DIOVAN [Concomitant]
     Indication: HYPERTENSION
  8. HUMIRA [Suspect]
     Indication: RHEUMATOID ARTHRITIS
     Dates: start: 20100713, end: 20101009
  9. ARAVA [Concomitant]
     Indication: RHEUMATOID ARTHRITIS
  10. CRESTOR [Concomitant]
     Indication: BLOOD CHOLESTEROL INCREASED
  11. ASPIRIN [Concomitant]
     Indication: PROPHYLAXIS

REACTIONS (5)
  - TOOTH ABSCESS [None]
  - DRUG INEFFECTIVE [None]
  - DRUG DOSE OMISSION [None]
  - RHEUMATOID ARTHRITIS [None]
  - RED BLOOD CELL SEDIMENTATION RATE INCREASED [None]
